FAERS Safety Report 5238710-9 (Version None)
Quarter: 2007Q1

REPORT INFORMATION
  Report Type: 
  Country: None (occurrence: None)
  Receive Date: 20070215
  Receipt Date: 20070212
  Transmission Date: 20070707
  Serious: Yes (Death)
  Sender: FDA-Public Use
  Company Number: IN-ROXANE LABORATORIES, INC-2007-BP-02093RO

PATIENT
  Age: 50 Year
  Sex: Female

DRUGS (3)
  1. METHOTREXATE [Suspect]
     Indication: INFLAMMATORY BOWEL DISEASE
     Dosage: 5 MG/DAY
     Route: 048
  2. PREDNISOLONE [Concomitant]
  3. NSAID'S [Concomitant]

REACTIONS (4)
  - DIARRHOEA [None]
  - MUCOSAL INFLAMMATION [None]
  - PANCYTOPENIA [None]
  - PYREXIA [None]
